FAERS Safety Report 17743190 (Version 2)
Quarter: 2020Q2

REPORT INFORMATION
  Report Type: Spontaneous
  Country: US (occurrence: US)
  Receive Date: 20200504
  Receipt Date: 20200513
  Transmission Date: 20200714
  Serious: No
  Sender: FDA-Public Use
  Company Number: US-BAYER-2020-071361

PATIENT
  Age: 67 Year
  Sex: Female

DRUGS (1)
  1. NEXAVAR [Suspect]
     Active Substance: SORAFENIB
     Indication: HEPATOCELLULAR CARCINOMA
     Dosage: 200 MG, BID
     Dates: start: 20190513

REACTIONS (6)
  - Renal disorder [Unknown]
  - Rash [Unknown]
  - Off label use [None]
  - Chest pain [Unknown]
  - Pain in extremity [None]
  - Product dose omission [Unknown]

NARRATIVE: CASE EVENT DATE: 20190513
